FAERS Safety Report 17907438 (Version 2)
Quarter: 2020Q4

REPORT INFORMATION
  Report Type: Spontaneous
  Country: GB (occurrence: GB)
  Receive Date: 20200617
  Receipt Date: 20201022
  Transmission Date: 20210113
  Serious: Yes (Hospitalization, Other)
  Sender: FDA-Public Use
  Company Number: GB-TEVA-2020-GB-1783624

PATIENT
  Age: 66 Year
  Sex: Male
  Weight: 104 kg

DRUGS (6)
  1. PRIMIDONE. [Suspect]
     Active Substance: PRIMIDONE
     Indication: EPILEPSY
     Dosage: 750 MG
     Dates: start: 20110405
  2. FOLIC ACID. [Concomitant]
     Active Substance: FOLIC ACID
     Indication: FOLATE DEFICIENCY
     Dates: start: 20191118
  3. COLECALCIFEROL [Concomitant]
     Active Substance: CHOLECALCIFEROL
     Indication: VITAMIN E DEFICIENCY
  4. PHENOBARBITAL SODIUM. [Suspect]
     Active Substance: PHENOBARBITAL SODIUM
     Indication: EPILEPSY
     Dosage: 90 MG
     Route: 048
     Dates: start: 20110405
  5. DIAZEPAM. [Concomitant]
     Active Substance: DIAZEPAM
  6. PHENYTOIN SODIUM. [Concomitant]
     Active Substance: PHENYTOIN SODIUM
     Indication: EPILEPSY

REACTIONS (4)
  - Fall [Recovered/Resolved]
  - Confusional state [Recovered/Resolved]
  - Nystagmus [Recovered/Resolved]
  - Hallucination, visual [Recovered/Resolved]

NARRATIVE: CASE EVENT DATE: 20200524
